FAERS Safety Report 11024332 (Version 1)
Quarter: 2015Q2

REPORT INFORMATION
  Report Type: Not Available
  Country: ZA (occurrence: ZA)
  Receive Date: 20150414
  Receipt Date: 20150414
  Transmission Date: 20150821
  Serious: Yes (Other)
  Sender: FDA-Public Use
  Company Number: ZA-LUPIN PHARMACEUTICALS INC.-2015-01023

PATIENT
  Age: 57 Year
  Sex: Female

DRUGS (12)
  1. FORVENT REF [Concomitant]
     Indication: ASTHMA
     Route: 065
     Dates: start: 201405
  2. PAX [Concomitant]
     Indication: ANXIETY
     Route: 048
  3. CARVETREND [Suspect]
     Active Substance: CARVEDILOL
     Indication: HYPERTENSION
     Dates: start: 2013, end: 201502
  4. DIAGLUCIDE MR 30MG [Concomitant]
     Indication: DIABETES MELLITUS
     Route: 048
     Dates: start: 2010
  5. PREMARIN 1.25MG [Concomitant]
     Indication: HORMONE REPLACEMENT THERAPY
     Route: 048
     Dates: start: 2010
  6. SIMVACOR 20MG [Concomitant]
     Indication: BLOOD CHOLESTEROL
     Route: 048
     Dates: start: 2010
  7. EUTHYROX 25MG [Concomitant]
     Indication: HYPOTHYROIDISM
     Route: 048
     Dates: start: 2013
  8. MONT-AIR [Concomitant]
     Indication: ASTHMA
     Route: 048
     Dates: start: 2013
  9. PLENISH K 600MG [Concomitant]
     Indication: BLOOD POTASSIUM
     Route: 048
     Dates: start: 201405
  10. ALTOSEC [Concomitant]
     Active Substance: OMEPRAZOLE
     Indication: GASTROOESOPHAGEAL REFLUX DISEASE
     Route: 048
     Dates: start: 2010
  11. ONGLYZA 5MG [Concomitant]
     Indication: DIABETES MELLITUS
     Route: 048
     Dates: start: 2010
  12. ALDATONE 100 [Concomitant]
     Indication: HYPERTENSION
     Route: 048
     Dates: start: 201405

REACTIONS (3)
  - Haemorrhage subcutaneous [Recovered/Resolved]
  - Peripheral swelling [Recovered/Resolved]
  - Rash [Recovered/Resolved]

NARRATIVE: CASE EVENT DATE: 201502
